FAERS Safety Report 8233158-7 (Version None)
Quarter: 2012Q1

REPORT INFORMATION
  Report Type: 
  Country: None (occurrence: None)
  Receive Date: 20120326
  Receipt Date: 20120321
  Transmission Date: 20120608
  Serious: No
  Sender: FDA-Public Use
  Company Number: US-PFIZER INC-2012074087

PATIENT
  Sex: Male
  Weight: 106 kg

DRUGS (6)
  1. PROCARDIA XL [Suspect]
     Dosage: 30 MG, 2X/DAY
     Route: 048
     Dates: end: 20110901
  2. NIFEDIPINE [Suspect]
     Dosage: 30 MG, 2X/DAY
     Route: 048
     Dates: start: 20110901, end: 20120201
  3. MEVACOR [Concomitant]
     Indication: BLOOD CHOLESTEROL INCREASED
     Dosage: 20 MG, UNK
  4. PROCARDIA XL [Suspect]
     Indication: HYPERTENSION
     Dosage: 30 MG, 2X/DAY
     Route: 048
     Dates: start: 19931101
  5. NIFEDIPINE [Suspect]
     Indication: HYPERTENSION
     Dosage: 30 MG, 2X/DAY
     Route: 048
     Dates: start: 20100201
  6. ALLOPURINOL [Concomitant]
     Indication: GOUT
     Dosage: UNK

REACTIONS (1)
  - DRUG INEFFECTIVE [None]
